FAERS Safety Report 12552011 (Version 1)
Quarter: 2016Q3

REPORT INFORMATION
  Report Type: Spontaneous
  Country: US (occurrence: None)
  Receive Date: 20160712
  Receipt Date: 20160712
  Transmission Date: 20161109
  Serious: Yes (Disabling)
  Sender: FDA-Public Use
  Company Number: None

PATIENT
  Age: 50 Year
  Sex: Female
  Weight: 49.9 kg

DRUGS (7)
  1. HYDROCO/APAP 10/325, 10 MG AUROLIFE PHARMA [Suspect]
     Active Substance: ACETAMINOPHEN\HYDROCODONE BITARTRATE
     Indication: PAIN
     Route: 048
  2. FENTANYL. [Concomitant]
     Active Substance: FENTANYL
  3. HAWTHORN BERRIES [Concomitant]
  4. VITAMIN D [Concomitant]
     Active Substance: CHOLECALCIFEROL
  5. HYDROCODONE [Concomitant]
     Active Substance: HYDROCODONE
  6. BACLOFEN. [Concomitant]
     Active Substance: BACLOFEN
  7. LEVOTHYROXINE. [Concomitant]
     Active Substance: LEVOTHYROXINE

REACTIONS (6)
  - Headache [None]
  - Nausea [None]
  - Product substitution issue [None]
  - Asthenia [None]
  - Dizziness [None]
  - Drug ineffective [None]

NARRATIVE: CASE EVENT DATE: 20160708
